FAERS Safety Report 5546153-3 (Version None)
Quarter: 2007Q4

REPORT INFORMATION
  Report Type: 
  Country: None (occurrence: None)
  Receive Date: 20071206
  Receipt Date: 20071121
  Transmission Date: 20080405
  Serious: Yes (Hospitalization)
  Sender: FDA-Public Use
  Company Number: 2007S1012151

PATIENT
  Age: 40 Year
  Sex: Female

DRUGS (4)
  1. WARFARIN SODIUM [Suspect]
     Indication: DRUG USE FOR UNKNOWN INDICATION
     Dosage: ORAL
     Route: 048
     Dates: start: 20071005, end: 20071012
  2. CO-CODAMOL (PANADELINE CO) (CON.) [Concomitant]
  3. FRAGMIN /00889602/ (HEPARIN-FRACTION, SODIUM SALT) (CON.) [Concomitant]
  4. PARACETAMOL (PARACETAMOL) (CON.) [Concomitant]

REACTIONS (1)
  - RASH [None]
